FAERS Safety Report 5739492-4 (Version None)
Quarter: 2008Q2

REPORT INFORMATION
  Report Type: 
  Country: None (occurrence: None)
  Receive Date: 20080515
  Receipt Date: 20080508
  Transmission Date: 20081010
  Serious: Yes (Disabling, Other)
  Sender: FDA-Public Use
  Company Number: US-PFIZER INC-2008040996

PATIENT
  Sex: Female
  Weight: 60.3 kg

DRUGS (3)
  1. CHANTIX [Suspect]
     Indication: SMOKING CESSATION THERAPY
  2. KLONOPIN [Concomitant]
  3. NADOLOL [Concomitant]

REACTIONS (3)
  - ABASIA [None]
  - ABDOMINAL PAIN [None]
  - IMPAIRED WORK ABILITY [None]
